FAERS Safety Report 6520051-0 (Version None)
Quarter: 2009Q4

REPORT INFORMATION
  Report Type: 
  Country: None (occurrence: None)
  Receive Date: 20091229
  Receipt Date: 20091215
  Transmission Date: 20100525
  Serious: Yes (Hospitalization)
  Sender: FDA-Public Use
  Company Number: PHHY2009ES55408

PATIENT
  Age: 43 Year
  Sex: Female

DRUGS (6)
  1. TRILEPTAL [Suspect]
     Indication: EPILEPSY
     Dosage: 1800 MG, QD
     Route: 048
     Dates: start: 20080301, end: 20090708
  2. LOSARTAN [Concomitant]
     Indication: HYPERTENSION
     Dosage: 25 MG, QD
     Route: 048
     Dates: start: 20080701
  3. VALPROIC ACID [Concomitant]
     Indication: EPILEPSY
     Dosage: UNK
     Route: 048
     Dates: end: 20080301
  4. DIANBERM [Concomitant]
     Indication: DIABETES MELLITUS
     Dosage: 1700 MG, UNK
     Route: 048
  5. FENOBARBITAL [Concomitant]
     Indication: EPILEPSY
     Dosage: UNK
     Route: 048
     Dates: end: 20090601
  6. LANTUS [Concomitant]
     Indication: DIABETES MELLITUS
     Dosage: 36 IU, UNK
     Route: 058

REACTIONS (1)
  - HYPONATRAEMIA [None]
